FAERS Safety Report 25932975 (Version 2)
Quarter: 2025Q4

REPORT INFORMATION
  Report Type: Spontaneous
  Country: US (occurrence: US)
  Receive Date: 20251017
  Receipt Date: 20251029
  Transmission Date: 20260117
  Serious: Yes (Other)
  Sender: CSL BEHRING
  Company Number: US-BEH-2025221206

PATIENT
  Age: 36 Year
  Sex: Female

DRUGS (4)
  1. ANDEMBRY [Suspect]
     Active Substance: GARADACIMAB-GXII
     Indication: Hereditary angioedema
     Dosage: 200 MG, QMT
     Route: 058
     Dates: start: 202509
  2. ANDEMBRY [Suspect]
     Active Substance: GARADACIMAB-GXII
     Indication: Prophylaxis
     Dosage: 200 MG, AS ORDERED
     Route: 058
     Dates: start: 20251001
  3. ANDEMBRY [Suspect]
     Active Substance: GARADACIMAB-GXII
     Indication: Hereditary angioedema
  4. CINRYZE [Concomitant]
     Active Substance: HUMAN C1-ESTERASE INHIBITOR

REACTIONS (3)
  - Hereditary angioedema [Unknown]
  - Hereditary angioedema [Recovered/Resolved]
  - Hereditary angioedema [Recovering/Resolving]

NARRATIVE: CASE EVENT DATE: 20251001
